FAERS Safety Report 4514103-4 (Version None)
Quarter: 2004Q4

REPORT INFORMATION
  Report Type: 
  Country: None (occurrence: None)
  Receive Date: 20041124
  Receipt Date: 20041110
  Transmission Date: 20050328
  Serious: No
  Sender: FDA-Public Use
  Company Number: OMPQ-NO-0411S-1359

PATIENT
  Age: 79 Year
  Sex: Male

DRUGS (1)
  1. OMNIPAQUE 180 [Suspect]
     Indication: BILE DUCT CANCER
     Dosage: 100 ML, SINGLE DOSE, EXTRAVASATION
     Dates: start: 20041001, end: 20041001

REACTIONS (4)
  - COMPARTMENT SYNDROME [None]
  - EXTRAVASATION [None]
  - INJECTION SITE ERYTHEMA [None]
  - INJECTION SITE NECROSIS [None]
